FAERS Safety Report 15171328 (Version 1)
Quarter: 2018Q3

REPORT INFORMATION
  Report Type: Spontaneous
  Country: US (occurrence: US)
  Receive Date: 20180622
  Receipt Date: 20180622
  Transmission Date: 20181010
  Serious: Yes (Life-Threatening, Other)
  Sender: FDA-Public Use
  Company Number: None

PATIENT
  Age: 62 Year
  Sex: Female
  Weight: 65.25 kg

DRUGS (3)
  1. CELECOXIB 200MG NDC: 62332?0142?71 MFG: ALEMB FILLED: 06?15?2018 [Suspect]
     Active Substance: CELECOXIB
     Indication: INFLAMMATION
     Dosage: ?          QUANTITY:1 CAPSULE(S);?
     Route: 048
     Dates: start: 20180615, end: 20180617
  2. CELECOXIB 200MG NDC: 62332?0142?71 MFG: ALEMB FILLED: 06?15?2018 [Suspect]
     Active Substance: CELECOXIB
     Indication: OSTEOARTHRITIS
     Dosage: ?          QUANTITY:1 CAPSULE(S);?
     Route: 048
     Dates: start: 20180615, end: 20180617
  3. LOSARTAN. [Concomitant]
     Active Substance: LOSARTAN

REACTIONS (6)
  - Palpitations [None]
  - Nausea [None]
  - Vomiting [None]
  - Product substitution issue [None]
  - Migraine [None]
  - Tachycardia [None]

NARRATIVE: CASE EVENT DATE: 20180615
